FAERS Safety Report 20955348 (Version 3)
Quarter: 2025Q2

REPORT INFORMATION
  Report Type: Spontaneous
  Country: US (occurrence: US)
  Receive Date: 20220614
  Receipt Date: 20250408
  Transmission Date: 20250717
  Serious: Yes (Hospitalization, Other)
  Sender: SANOFI AVENTIS
  Company Number: US-SA-SAC20220612000077

PATIENT
  Age: 61 Year
  Sex: Female

DRUGS (16)
  1. AUBAGIO [Suspect]
     Active Substance: TERIFLUNOMIDE
     Indication: Multiple sclerosis
     Dosage: 14 MG, QD
     Route: 048
     Dates: start: 2017
  2. KESIMPTA [Suspect]
     Active Substance: OFATUMUMAB
     Indication: Relapsing-remitting multiple sclerosis
     Dosage: 20 MG, Q4W
     Route: 058
     Dates: start: 20220521
  3. DALFAMPRIDINE [Suspect]
     Active Substance: DALFAMPRIDINE
  4. ZANAFLEX [Concomitant]
     Active Substance: TIZANIDINE HYDROCHLORIDE
     Dosage: 2.5 DF, HS
     Route: 048
  5. BIOTIN [Concomitant]
     Active Substance: BIOTIN
     Dosage: 30000 UG, TID
     Route: 048
  6. ZEAXANTHIN [Concomitant]
     Active Substance: ZEAXANTHIN
  7. CALCIUM [Concomitant]
     Active Substance: CALCIUM
     Route: 048
  8. ALFA LIPOIC ACID [Concomitant]
     Dosage: 1 DF, BID
     Route: 048
  9. VITAMIN D NOS [Concomitant]
     Active Substance: CHOLECALCIFEROL\ERGOCALCIFEROL
     Dosage: 4000 U, QD
     Route: 048
  10. PFIZER-BIONTECH COVID-19 VACCINE [Concomitant]
     Active Substance: TOZINAMERAN
     Indication: Immunisation
  11. MIRALAX [Concomitant]
     Active Substance: POLYETHYLENE GLYCOL 3350
  12. HERBALS\TURMERIC [Concomitant]
     Active Substance: HERBALS\TURMERIC
     Dosage: 1/4 TEASPOON, QD
     Route: 048
  13. MODERNA COVID-19 VACCINE [Concomitant]
     Active Substance: ELASOMERAN
     Indication: Immunisation
  14. PROBIOTICS NOS [Concomitant]
     Active Substance: PROBIOTICS NOS
  15. ZEAXANTHIN [Concomitant]
     Active Substance: ZEAXANTHIN
     Dosage: 1 DF, QD
     Route: 048
  16. GLYCOLAX [Concomitant]
     Active Substance: POLYETHYLENE GLYCOL 3350
     Dosage: 17 G, QD
     Route: 048

REACTIONS (24)
  - Gait inability [Unknown]
  - Muscular weakness [Unknown]
  - Muscle spasticity [Unknown]
  - Multiple sclerosis relapse [Unknown]
  - Syncope [Unknown]
  - Blood glucose increased [Unknown]
  - Pyrexia [Unknown]
  - Balance disorder [Unknown]
  - Vision blurred [Unknown]
  - Blood urea increased [Unknown]
  - Blood urea nitrogen/creatinine ratio increased [Unknown]
  - Protein total decreased [Unknown]
  - Blood albumin decreased [Unknown]
  - Neutrophil count increased [Unknown]
  - Neutrophil percentage increased [Unknown]
  - White blood cell count increased [Unknown]
  - Loss of personal independence in daily activities [Unknown]
  - Fatigue [Unknown]
  - Hypersomnia [Unknown]
  - Snoring [Unknown]
  - Neuralgia [Unknown]
  - Fall [Unknown]
  - Lymphocyte percentage decreased [Unknown]
  - Lymphocyte count decreased [Unknown]

NARRATIVE: CASE EVENT DATE: 20210101
